FAERS Safety Report 12415771 (Version 1)
Quarter: 2016Q2

REPORT INFORMATION
  Report Type: Spontaneous
  Country: US (occurrence: US)
  Receive Date: 20160530
  Receipt Date: 20160530
  Transmission Date: 20160815
  Serious: No
  Sender: FDA-Public Use
  Company Number: US-AMGEN-USASP2016067271

PATIENT
  Age: 16 Year
  Sex: Female
  Weight: 80.73 kg

DRUGS (2)
  1. ENBREL [Suspect]
     Active Substance: ETANERCEPT
     Indication: RHEUMATOID ARTHRITIS
     Dosage: 25 MG,TWO INJECTIONS TWICE A WEEK
     Route: 058
  2. METHOTREXATE [Concomitant]
     Active Substance: METHOTREXATE
     Dosage: 4 MG, UNK

REACTIONS (3)
  - Crying [Unknown]
  - Feeling abnormal [Unknown]
  - Injection site pain [Unknown]
